FAERS Safety Report 7414908-6 (Version None)
Quarter: 2011Q2

REPORT INFORMATION
  Report Type: 
  Country: None (occurrence: None)
  Receive Date: 20110414
  Receipt Date: 20110411
  Transmission Date: 20111010
  Serious: Yes (Disabling)
  Sender: FDA-Public Use
  Company Number: DK-TEVA-276081ISR

PATIENT
  Sex: Female

DRUGS (2)
  1. METHOTREXATE [Suspect]
     Indication: RHEUMATOID ARTHRITIS
     Route: 058
     Dates: start: 20070607
  2. REMICADE [Concomitant]
     Indication: RHEUMATOID ARTHRITIS
     Dosage: 230 MG UGE 0,2,6, +8.
     Dates: start: 20070920

REACTIONS (1)
  - TENDON RUPTURE [None]
